FAERS Safety Report 9815720 (Version 2)
Quarter: 2014Q1

REPORT INFORMATION
  Report Type: Spontaneous
  Country: US (occurrence: US)
  Receive Date: 20140114
  Receipt Date: 20140219
  Transmission Date: 20141002
  Serious: No
  Sender: FDA-Public Use
  Company Number: US-B.I. PHARMACEUTICALS,INC./RIDGEFIELD-2014-BI-00512BP

PATIENT
  Age: 81 Year
  Sex: Female
  Weight: 92 kg

DRUGS (3)
  1. SPIRIVA [Suspect]
     Indication: ASTHMA
     Dosage: 18 MCG
     Route: 055
     Dates: start: 2008
  2. ADVAIR [Concomitant]
     Indication: ASTHMA
     Dosage: 500 MCG
     Route: 055
  3. PROAIR [Concomitant]
     Indication: ASTHMA
     Route: 055

REACTIONS (6)
  - Cataract [Recovered/Resolved]
  - Anxiety [Not Recovered/Not Resolved]
  - Dyspnoea [Not Recovered/Not Resolved]
  - Abnormal loss of weight [Recovered/Resolved]
  - Off label use [Unknown]
  - Product quality issue [Recovered/Resolved]
